FAERS Safety Report 9659400 (Version 1)
Quarter: 2013Q4

REPORT INFORMATION
  Report Type: Spontaneous
  Country: US (occurrence: US)
  Receive Date: 20131031
  Receipt Date: 20131031
  Transmission Date: 20140711
  Serious: No
  Sender: FDA-Public Use
  Company Number: US-ENDO PHARMACEUTICALS INC.-HCDA20110140

PATIENT
  Sex: Female
  Weight: 112.59 kg

DRUGS (21)
  1. HYDROCODONE/ACETAMINOPHEN 10MG/325MG [Suspect]
     Indication: BACK PAIN
     Dosage: 60-80 /1950-2600 MG
     Route: 048
  2. HYDROCODONE/ACETAMINOPHEN 10MG/325MG [Suspect]
     Indication: PAIN IN EXTREMITY
  3. LEXAPRO [Concomitant]
     Indication: FIBROMYALGIA
     Route: 065
  4. SYNTHROID [Concomitant]
     Indication: BASEDOW^S DISEASE
     Route: 065
  5. SYNTHROID [Concomitant]
     Indication: RADIOTHERAPY
  6. CELEBREX [Concomitant]
     Indication: ARTHRITIS
     Route: 065
  7. TOVIAZ [Concomitant]
     Indication: STRESS URINARY INCONTINENCE
     Route: 065
  8. PRILOSEC [Concomitant]
     Indication: BARRETT^S OESOPHAGUS
     Route: 065
  9. FUROSEMIDE [Concomitant]
     Indication: FLUID RETENTION
     Route: 065
  10. WARFARIN [Concomitant]
     Indication: PRODUCT USED FOR UNKNOWN INDICATION
     Route: 048
  11. BUPROPION [Concomitant]
     Indication: DEPRESSION
     Route: 065
  12. TRAZODONE [Concomitant]
     Indication: FIBROMYALGIA
     Route: 065
  13. POTASSIUM CHLORIDE [Concomitant]
     Indication: SUPPLEMENTATION THERAPY
     Route: 065
  14. VITAMIN C [Concomitant]
     Indication: PRODUCT USED FOR UNKNOWN INDICATION
     Route: 065
  15. CALCIUM MAGNESIUM CITRATE [Concomitant]
     Indication: PRODUCT USED FOR UNKNOWN INDICATION
     Route: 065
  16. GARLIC [Concomitant]
     Indication: PRODUCT USED FOR UNKNOWN INDICATION
     Route: 065
  17. VITAMIN B12 [Concomitant]
     Indication: PRODUCT USED FOR UNKNOWN INDICATION
     Route: 065
  18. OMEGA-3 [Concomitant]
     Indication: PRODUCT USED FOR UNKNOWN INDICATION
     Dosage: 3600
     Route: 065
  19. VITAMIN D [Concomitant]
     Indication: PRODUCT USED FOR UNKNOWN INDICATION
  20. VITAMIN E [Concomitant]
     Indication: PRODUCT USED FOR UNKNOWN INDICATION
     Route: 065
  21. GLUCOSAMINE/CHONDROITIN [Concomitant]
     Indication: PRODUCT USED FOR UNKNOWN INDICATION
     Dosage: 1160
     Route: 065

REACTIONS (7)
  - Overdose [Unknown]
  - Decreased interest [Unknown]
  - Pain [Not Recovered/Not Resolved]
  - Apathy [Unknown]
  - Hypersomnia [Unknown]
  - Anxiety [Unknown]
  - Drug ineffective [Unknown]
